FAERS Safety Report 9489983 (Version 2)
Quarter: 2013Q3

REPORT INFORMATION
  Report Type: Spontaneous
  Country: GB (occurrence: GB)
  Receive Date: 20130829
  Receipt Date: 20130829
  Transmission Date: 20140515
  Serious: Yes (Other)
  Sender: FDA-Public Use
  Company Number: GB-ABBOTT-13P-167-1128002-00

PATIENT
  Age: 66 Year
  Sex: Female
  Weight: 68.4 kg

DRUGS (3)
  1. HUMIRA [Suspect]
     Indication: PSORIASIS
     Dosage: 40MG
     Route: 058
     Dates: start: 20130605, end: 20130716
  2. OMEPRAZOLE [Concomitant]
     Indication: DYSPEPSIA
     Route: 048
  3. SERETIDE [Concomitant]
     Indication: ASTHMA
     Route: 048

REACTIONS (4)
  - Pemphigoid [Recovering/Resolving]
  - Rash [Recovering/Resolving]
  - Discomfort [Recovering/Resolving]
  - Drug specific antibody present [Recovering/Resolving]
